FAERS Safety Report 7004634-X (Version None)
Quarter: 2010Q3

REPORT INFORMATION
  Report Type: 
  Country: None (occurrence: None)
  Receive Date: 20100921
  Receipt Date: 20100914
  Transmission Date: 20110219
  Serious: Yes (Hospitalization, Other)
  Sender: FDA-Public Use
  Company Number: US-ASTRAZENECA-2007UW19150

PATIENT
  Age: 18728 Day
  Sex: Male
  Weight: 128.4 kg

DRUGS (37)
  1. SEROQUEL [Suspect]
     Indication: ANXIETY
     Dosage: 100-300 MG
     Route: 048
     Dates: start: 20020101, end: 20050101
  2. SEROQUEL [Suspect]
     Indication: BIPOLAR DISORDER
     Dosage: 100-300 MG
     Route: 048
     Dates: start: 20020101, end: 20050101
  3. SEROQUEL [Suspect]
     Route: 048
     Dates: start: 20020920
  4. SEROQUEL [Suspect]
     Route: 048
     Dates: start: 20020920
  5. SEROQUEL [Suspect]
     Route: 048
     Dates: start: 20021022
  6. SEROQUEL [Suspect]
     Route: 048
     Dates: start: 20021022
  7. SEROQUEL [Suspect]
     Dosage: 300-1000 MG (FLUCTUATING)
     Route: 048
     Dates: start: 20021227
  8. SEROQUEL [Suspect]
     Dosage: 300-1000 MG (FLUCTUATING)
     Route: 048
     Dates: start: 20021227
  9. SEROQUEL [Suspect]
     Route: 048
     Dates: start: 20100330
  10. SEROQUEL [Suspect]
     Route: 048
     Dates: start: 20100330
  11. SEROQUEL [Suspect]
     Route: 048
     Dates: end: 20100506
  12. SEROQUEL [Suspect]
     Route: 048
     Dates: end: 20100506
  13. SEROQUEL [Suspect]
     Dosage: 100-1000 MG PER DAY
     Route: 048
     Dates: start: 20020101, end: 20051201
  14. SEROQUEL [Suspect]
     Dosage: 100-1000 MG PER DAY
     Route: 048
     Dates: start: 20020101, end: 20051201
  15. ZYPREXA [Concomitant]
     Dosage: 2.5-5 MG
     Dates: start: 20011108, end: 20020101
  16. KLONOPIN [Concomitant]
     Dosage: 0.5 MG B.I.D, THREE TIMES A DAY
     Route: 048
     Dates: start: 20030321
  17. TRILEPTAL [Concomitant]
     Indication: AFFECTIVE DISORDER
     Dosage: 600-1200 MG DAILY
     Dates: start: 20051121
  18. TRILEPTAL [Concomitant]
     Dosage: 600 MG 2 BID
     Dates: start: 20100101
  19. NAPROXEN [Concomitant]
     Dates: start: 20031219
  20. TRAZODONE HCL [Concomitant]
     Indication: INSOMNIA
     Dosage: 50-200 MG, AT NIGHT, 100 MG TWICE DAILY
     Route: 048
     Dates: start: 20040721, end: 20100506
  21. WELLBUTRIN [Concomitant]
     Dates: start: 20020920
  22. WELLBUTRIN [Concomitant]
     Dosage: 150-300 MG A DAY
     Route: 048
     Dates: start: 20030124, end: 20051024
  23. GLYBURIDE [Concomitant]
     Indication: HYPERGLYCAEMIA
     Dates: start: 20040816
  24. GLUCOPHAGE [Concomitant]
     Indication: DIABETES MELLITUS
     Dates: start: 20041202
  25. SINGULAIR [Concomitant]
     Dates: start: 20030519
  26. BENICAR [Concomitant]
     Indication: BLOOD PRESSURE
     Dates: start: 20030603
  27. ENOXAPARIN SODIUM [Concomitant]
     Dosage: 30 MG/0.3 ML
     Dates: start: 20011108
  28. LITHIUM CARBONATE [Concomitant]
     Dates: start: 20011108
  29. LITHIUM CARBONATE [Concomitant]
     Dates: start: 20021022
  30. ACETAMINOPHEN AND HYDROCODONE BITARTRATE [Concomitant]
     Dosage: 5/500 MG
     Dates: start: 20011108
  31. EFFEXOR [Concomitant]
     Dosage: 75 MG THREE TABLETS DAILY
     Dates: start: 20100330
  32. EFFEXOR [Concomitant]
     Dates: start: 20100101
  33. LISINOPRIL [Concomitant]
     Dates: start: 20100330
  34. PRAVASTATIN [Concomitant]
     Dates: start: 20100330
  35. DILTIAZEM [Concomitant]
     Dates: start: 20100330
  36. AMBIEN [Concomitant]
     Dates: start: 20100101
  37. ABILIFY [Concomitant]
     Dates: start: 20070101

REACTIONS (6)
  - ALTERED STATE OF CONSCIOUSNESS [None]
  - ARTHROPATHY [None]
  - HYPERTENSION [None]
  - HYPOGLYCAEMIA [None]
  - NEUROPATHY PERIPHERAL [None]
  - TYPE 2 DIABETES MELLITUS [None]
